FAERS Safety Report 20022255 (Version 1)
Quarter: 2021Q4

REPORT INFORMATION
  Report Type: Spontaneous
  Country: IN (occurrence: IN)
  Receive Date: 20211102
  Receipt Date: 20211102
  Transmission Date: 20220304
  Serious: Yes (Other)
  Sender: FDA-Public Use
  Company Number: IN-MLMSERVICE-20211021-3180893-1

PATIENT
  Age: 20 Year
  Sex: Male

DRUGS (2)
  1. DEXAMETHASONE [Suspect]
     Active Substance: DEXAMETHASONE
     Indication: Muscle building therapy
  2. CYPROHEPTADINE HYDROCHLORIDE [Suspect]
     Active Substance: CYPROHEPTADINE HYDROCHLORIDE
     Indication: Muscle building therapy
     Dosage: 8 MG IN TWO DIVIDED DOSES

REACTIONS (3)
  - Suicide attempt [Unknown]
  - Obsessive-compulsive disorder [Recovered/Resolved]
  - Product use in unapproved indication [Unknown]
